FAERS Safety Report 4707089-0 (Version None)
Quarter: 2005Q3

REPORT INFORMATION
  Report Type: 
  Country: None (occurrence: None)
  Receive Date: 20050701
  Receipt Date: 20050622
  Transmission Date: 20060218
  Serious: No
  Sender: FDA-Public Use
  Company Number: 05H-163-0300521-00

PATIENT
  Age: 6 Month
  Sex: Female

DRUGS (13)
  1. MIDAZOLAM HYDROCHLORIDE [Suspect]
     Indication: SEDATION
     Dosage: 0.2 MG/KG, PER HOUR, INTRAVENOUS INFUSION
     Route: 042
  2. FENTANYL [Suspect]
     Indication: ANALGESIC EFFECT
     Dosage: 2 MCG/KG, PER HOUR, INTRAVENOUS
     Route: 042
  3. METHADONE HCL [Suspect]
     Indication: ANALGESIC EFFECT
     Dosage: ENTERAL
     Route: 007
  4. DIAZEPAM [Suspect]
     Indication: SEDATION
     Dosage: ENTERAL
  5. FLUTICASONE PROPIONATE [Concomitant]
  6. ELEMENTAL IRON [Concomitant]
  7. URSODIOL (URSODEOXYCHOLIC ACID) [Concomitant]
  8. CALCIUM CARBONATE (CALCIUM CARBONATE) [Concomitant]
  9. DIHYDROTACHYSTEROL [Concomitant]
  10. RINGER'S LACTATE (RINGER-LACTATE SOLUTION ^FRESENIUS^) [Concomitant]
  11. PROPOFOL [Concomitant]
  12. SODIUM CHLORIDE [Concomitant]
  13. ANTIBIOTICS (ANTIBIOTICS) [Concomitant]

REACTIONS (10)
  - CAPILLARY DISORDER [None]
  - CARDIAC ENZYMES INCREASED [None]
  - CATHETER RELATED COMPLICATION [None]
  - DRUG DEPENDENCE [None]
  - DRUG WITHDRAWAL SYNDROME [None]
  - ELECTROCARDIOGRAM ST SEGMENT DEPRESSION [None]
  - HYPERTENSION [None]
  - MYOCARDIAL ISCHAEMIA [None]
  - SINUS TACHYCARDIA [None]
  - YAWNING [None]
